FAERS Safety Report 8305631-4 (Version None)
Quarter: 2012Q2

REPORT INFORMATION
  Report Type: 
  Country: None (occurrence: None)
  Receive Date: 20120423
  Receipt Date: 20120411
  Transmission Date: 20120825
  Serious: Yes (Life-Threatening)
  Sender: FDA-Public Use
  Company Number: JP-JHP PHARMACEUTICALS, LLC-JHP201200148

PATIENT
  Age: 71 Year
  Sex: Male
  Weight: 48 kg

DRUGS (14)
  1. METFORMIN HCL [Concomitant]
     Indication: DIABETES MELLITUS
     Dosage: UNK
     Dates: start: 20111207
  2. KEISHIKASHAKUYAKUDAIOUTOU [Concomitant]
     Indication: CONSTIPATION
     Dosage: UNK
     Dates: start: 20111207
  3. METOPROLOL TARTRATE [Concomitant]
     Indication: HYPERTENSION
     Dosage: UNK
     Dates: start: 20111207
  4. DAIKENTYUTO [Concomitant]
     Indication: CONSTIPATION
     Dosage: UNK
     Dates: start: 20111207
  5. RABEPRAZOLE SODIUM [Concomitant]
     Indication: GASTRITIS
     Dosage: UNK
     Dates: start: 20111207
  6. KALIMATE [Concomitant]
     Indication: HYPERKALAEMIA
     Dosage: UNK
     Dates: start: 20111207
  7. MAGMITT [Concomitant]
     Indication: CONSTIPATION
     Dosage: UNK
     Dates: start: 20111207
  8. CILNIDIPINE [Concomitant]
     Indication: HYPERTENSION
     Dosage: UNK
     Dates: start: 20111207
  9. PL GRAN. [Concomitant]
     Indication: NASOPHARYNGITIS
     Dosage: UNK
     Dates: start: 20120227, end: 20120227
  10. DANTRIUM [Suspect]
     Indication: SPINAL CORD INJURY THORACIC
     Dosage: 25 MG, DAILY
     Route: 048
     Dates: start: 20120227, end: 20120227
  11. TIZANIDINE HCL [Concomitant]
     Indication: SPINAL CORD INJURY THORACIC
     Dosage: UNK
     Route: 048
     Dates: start: 20120227
  12. VOGLIBOSE [Concomitant]
     Indication: DIABETES MELLITUS
     Dosage: UNK
     Dates: start: 20111207
  13. JANUVIA [Concomitant]
     Indication: DIABETES MELLITUS
     Dosage: UNK
     Dates: start: 20111207
  14. ASPIRIN [Concomitant]
     Indication: STENT PLACEMENT
     Dosage: UNK
     Dates: start: 20111207

REACTIONS (2)
  - DYSPNOEA [None]
  - ALTERED STATE OF CONSCIOUSNESS [None]
